FAERS Safety Report 7573830-5 (Version None)
Quarter: 2011Q2

REPORT INFORMATION
  Report Type: 
  Country: None (occurrence: None)
  Receive Date: 20110627
  Receipt Date: 20110607
  Transmission Date: 20111010
  Serious: Yes (Hospitalization)
  Sender: FDA-Public Use
  Company Number: A0870677A

PATIENT
  Age: 75 Year
  Sex: Female

DRUGS (15)
  1. AVANDIA [Suspect]
     Dosage: 4MG PER DAY
     Route: 048
     Dates: start: 20040101, end: 20070601
  2. AVANDAMET [Suspect]
     Indication: DIABETES MELLITUS
     Route: 048
  3. TIAZAC [Concomitant]
  4. AVAPRO [Concomitant]
  5. ASPIRIN [Concomitant]
  6. COUMADIN [Concomitant]
  7. DIGOXIN [Concomitant]
  8. LEVOXYL [Concomitant]
  9. METFORMIN HCL [Concomitant]
  10. LASIX [Concomitant]
  11. METOPROLOL TARTRATE [Concomitant]
  12. NEXIUM [Concomitant]
  13. GLIPIZIDE [Concomitant]
  14. SYNTHROID [Concomitant]
  15. ZESTRIL [Concomitant]

REACTIONS (6)
  - BASAL GANGLIA INFARCTION [None]
  - VENTRICULAR TACHYCARDIA [None]
  - CARDIAC FAILURE CONGESTIVE [None]
  - MYOCARDIAL INFARCTION [None]
  - CARDIAC ARREST [None]
  - TRANSIENT ISCHAEMIC ATTACK [None]
